FAERS Safety Report 5236859-8 (Version None)
Quarter: 2007Q1

REPORT INFORMATION
  Report Type: 
  Country: None (occurrence: None)
  Receive Date: 20070213
  Receipt Date: 20070206
  Transmission Date: 20070707
  Serious: Yes (Other)
  Sender: FDA-Public Use
  Company Number: US-JNJFOC-20070202089

PATIENT
  Sex: Male
  Weight: 83.92 kg

DRUGS (5)
  1. DURAGESIC-100 [Suspect]
     Route: 062
  2. DURAGESIC-100 [Suspect]
     Route: 062
  3. DURAGESIC-100 [Suspect]
     Indication: PAIN
     Route: 062
  4. LORTAB [Concomitant]
     Indication: PAIN
     Route: 048
  5. TENORMIN [Concomitant]
     Indication: BLOOD PRESSURE
     Route: 048

REACTIONS (4)
  - ARACHNOIDITIS [None]
  - INADEQUATE ANALGESIA [None]
  - INTERVERTEBRAL DISC DEGENERATION [None]
  - MUSCLE SPASMS [None]
